FAERS Safety Report 4688512-7 (Version None)
Quarter: 2005Q2

REPORT INFORMATION
  Report Type: 
  Country: None (occurrence: None)
  Receive Date: 20050311
  Receipt Date: 20050311
  Transmission Date: 20051028
  Serious: Yes (Other)
  Sender: FDA-Public Use
  Company Number: None

PATIENT
  Age: 68 Year
  Sex: Female
  Weight: 78.0187 kg

DRUGS (1)
  1. GENERIC ISOPTIN (VERAPAMIL) [Suspect]
     Indication: ORTHOSTATIC HYPOTENSION
     Dosage: 240 BID

REACTIONS (1)
  - COUGH [None]
